FAERS Safety Report 19208406 (Version 1)
Quarter: 2021Q2

REPORT INFORMATION
  Report Type: Other
  Country: FR (occurrence: FR)
  Receive Date: 20210504
  Receipt Date: 20210504
  Transmission Date: 20210717
  Serious: Yes (Death)
  Sender: FDA-Public Use
  Company Number: FR-INNOGENIX, LLC-2110171

PATIENT
  Age: 30 Year
  Sex: Female

DRUGS (9)
  1. LORMETAZEPAM [Suspect]
     Active Substance: LORMETAZEPAM
     Route: 065
  2. THIOCOLCHICOSIDE [Suspect]
     Active Substance: THIOCOLCHICOSIDE
     Route: 065
  3. TRAMADOL. [Suspect]
     Active Substance: TRAMADOL
     Route: 065
  4. ACETAMINOPHEN. [Suspect]
     Active Substance: ACETAMINOPHEN
     Route: 065
  5. OXETORONE [Suspect]
     Active Substance: OXETORONE
     Route: 065
  6. NORDIAZEPAM [Suspect]
     Active Substance: NORDAZEPAM
     Route: 065
  7. OXAZEPAM. [Suspect]
     Active Substance: OXAZEPAM
     Route: 065
  8. PROPRANOLOL HYDROCHLORIDE. [Suspect]
     Active Substance: PROPRANOLOL HYDROCHLORIDE
     Indication: PRODUCT USED FOR UNKNOWN INDICATION
     Route: 065
  9. PAROXETINE. [Suspect]
     Active Substance: PAROXETINE
     Route: 065

REACTIONS (1)
  - Toxicity to various agents [Fatal]
